FAERS Safety Report 4403934-7 (Version None)
Quarter: 2004Q3

REPORT INFORMATION
  Report Type: 
  Country: None (occurrence: None)
  Receive Date: 20040721
  Receipt Date: 19990929
  Transmission Date: 20050211
  Serious: No
  Sender: FDA-Public Use
  Company Number: US-MERCK-99092264

PATIENT
  Age: 77 Year
  Sex: Male
  Weight: 68 kg

DRUGS (4)
  1. TENORMIN [Concomitant]
     Indication: HYPERTENSION
     Route: 048
  2. CARDURA [Concomitant]
     Indication: HYPERTENSION
     Route: 048
  3. VIOXX [Suspect]
     Indication: BACK PAIN
     Route: 048
     Dates: start: 19990826, end: 19990909
  4. VIOXX [Suspect]
     Indication: SURGERY
     Route: 048
     Dates: start: 19990826, end: 19990909

REACTIONS (4)
  - CATARACT [None]
  - HALLUCINATION [None]
  - HALLUCINATION, VISUAL [None]
  - VISUAL DISTURBANCE [None]
